FAERS Safety Report 9128495 (Version 1)
Quarter: 2013Q1

REPORT INFORMATION
  Report Type: Spontaneous
  Country: US (occurrence: US)
  Receive Date: 20130228
  Receipt Date: 20130228
  Transmission Date: 20140127
  Serious: No
  Sender: FDA-Public Use
  Company Number: US-GLAXOSMITHKLINE-A0998177A

PATIENT
  Age: 65 Year
  Sex: Female

DRUGS (5)
  1. SUMATRIPTAN SUCCINATE [Suspect]
     Indication: MIGRAINE
     Dosage: 6MG UNKNOWN
     Route: 058
  2. TYLENOL [Concomitant]
     Indication: MIGRAINE
     Dosage: 4TAB AS REQUIRED
     Route: 048
  3. TRAZODONE [Concomitant]
     Dosage: 100MG PER DAY
     Route: 048
  4. LEXAPRO [Concomitant]
     Indication: ANXIETY
     Route: 048
  5. LAMICTAL [Concomitant]
     Indication: PROPHYLAXIS
     Dosage: 200MG TWICE PER DAY
     Route: 048

REACTIONS (3)
  - Drug ineffective [Unknown]
  - Migraine [Recovered/Resolved]
  - Product quality issue [Unknown]
